FAERS Safety Report 5836421-X (Version None)
Quarter: 2008Q3

REPORT INFORMATION
  Report Type: 
  Country: None (occurrence: None)
  Receive Date: 20080806
  Receipt Date: 20080806
  Transmission Date: 20090109
  Serious: Yes (Hospitalization)
  Sender: FDA-Public Use
  Company Number: None

PATIENT
  Sex: Male
  Weight: 67.1324 kg

DRUGS (1)
  1. TAROEVA -ERLOTINIB- [Suspect]
     Indication: TONGUE NEOPLASM MALIGNANT STAGE UNSPECIFIED
     Dosage: 150 MG DAILY ORAL
     Route: 048
     Dates: start: 20080528, end: 20080725

REACTIONS (5)
  - CYANOSIS [None]
  - LARYNGEAL STENOSIS [None]
  - MUCOSAL INFLAMMATION [None]
  - RESPIRATORY DISTRESS [None]
  - UNRESPONSIVE TO STIMULI [None]
